FAERS Safety Report 16206551 (Version 2)
Quarter: 2019Q2

REPORT INFORMATION
  Report Type: Spontaneous
  Country: DE (occurrence: DE)
  Receive Date: 20190417
  Receipt Date: 20190430
  Transmission Date: 20190711
  Serious: Yes (Death, Other)
  Sender: FDA-Public Use
  Company Number: DE-SA-2019SA104545

PATIENT
  Age: 51 Year
  Sex: Male

DRUGS (5)
  1. HCT [Concomitant]
     Active Substance: HYDROCHLOROTHIAZIDE
  2. PREDNISOLONE. [Suspect]
     Active Substance: PREDNISOLONE
     Indication: RHEUMATOID ARTHRITIS
     Dosage: 10 MG, QD
     Route: 048
  3. METHOTREXATE. [Suspect]
     Active Substance: METHOTREXATE
     Indication: RHEUMATOID ARTHRITIS
     Dosage: 20 MG, QW
     Route: 048
  4. KEVZARA [Suspect]
     Active Substance: SARILUMAB
     Indication: RHEUMATOID ARTHRITIS
     Dosage: 150 MG, QOW
     Route: 058
     Dates: start: 20180306
  5. LISINOPRIL. [Concomitant]
     Active Substance: LISINOPRIL

REACTIONS (5)
  - Hepatic failure [Fatal]
  - Infectious pleural effusion [Fatal]
  - Pleural effusion [Fatal]
  - Renal failure [Fatal]
  - Endocarditis bacterial [Fatal]

NARRATIVE: CASE EVENT DATE: 2018
